FAERS Safety Report 24972996 (Version 1)
Quarter: 2025Q1

REPORT INFORMATION
  Report Type: Spontaneous
  Country: US (occurrence: US)
  Receive Date: 20250215
  Receipt Date: 20250215
  Transmission Date: 20250408
  Serious: Yes (Life-Threatening, Hospitalization, Other)
  Sender: BRACCO
  Company Number: US-BRACCO-2024US07059

PATIENT
  Age: 62 Year
  Sex: Female

DRUGS (3)
  1. ISOVUE 370 [Suspect]
     Active Substance: IOPAMIDOL
     Indication: Computerised tomogram thorax
     Route: 042
     Dates: start: 20241030, end: 20241030
  2. AMLODIPINE [Concomitant]
     Active Substance: AMLODIPINE BESYLATE
  3. CITALOPRAM [Concomitant]
     Active Substance: CITALOPRAM

REACTIONS (2)
  - Angioedema [Not Recovered/Not Resolved]
  - Anaphylactic reaction [Not Recovered/Not Resolved]

NARRATIVE: CASE EVENT DATE: 20241030
